FAERS Safety Report 16737591 (Version 1)
Quarter: 2019Q3

REPORT INFORMATION
  Report Type: Spontaneous
  Country: US (occurrence: US)
  Receive Date: 20190823
  Receipt Date: 20190823
  Transmission Date: 20191005
  Serious: Yes (Hospitalization, Other)
  Sender: FDA-Public Use
  Company Number: US-GILEAD-2019-0424951

PATIENT
  Age: 37 Year
  Sex: Female

DRUGS (1)
  1. BIKTARVY [Suspect]
     Active Substance: BICTEGRAVIR SODIUM\EMTRICITABINE\TENOFOVIR ALAFENAMIDE FUMARATE
     Indication: PRODUCT USED FOR UNKNOWN INDICATION
     Route: 065

REACTIONS (7)
  - Cardiac procedure complication [Not Recovered/Not Resolved]
  - Aortic aneurysm [Unknown]
  - Aortic aneurysm repair [Unknown]
  - Postoperative wound infection [Not Recovered/Not Resolved]
  - Aortic surgery [Unknown]
  - Aortic aneurysm repair [Unknown]
  - Aortic aneurysm repair [Unknown]

NARRATIVE: CASE EVENT DATE: 2016
